FAERS Safety Report 8363752-4 (Version None)
Quarter: 2012Q2

REPORT INFORMATION
  Report Type: 
  Country: None (occurrence: None)
  Receive Date: 20120516
  Receipt Date: 20120509
  Transmission Date: 20120825
  Serious: Yes (Hospitalization)
  Sender: FDA-Public Use
  Company Number: JP-FRI-1000030076

PATIENT
  Age: 57 Year
  Sex: Female

DRUGS (6)
  1. PEROSPIRONE [Concomitant]
     Dosage: 8 MG
     Route: 048
     Dates: start: 20120314, end: 20120320
  2. MEMANTINE HCL [Suspect]
     Indication: DEMENTIA
     Dosage: 5 MG
     Route: 048
     Dates: start: 20120314, end: 20120320
  3. MEMANTINE HCL [Suspect]
     Dosage: 10 MG
     Route: 048
     Dates: start: 20120321, end: 20120403
  4. MEMANTINE HCL [Suspect]
     Dosage: 15 MG
     Route: 048
     Dates: start: 20120404, end: 20120410
  5. PEROSPIRONE [Concomitant]
     Dosage: 4 MG
     Route: 048
     Dates: start: 20120321, end: 20120403
  6. PEROSPIRONE [Concomitant]
     Dosage: 2 MG
     Route: 048
     Dates: start: 20120404, end: 20120410

REACTIONS (1)
  - JAUNDICE [None]
